FAERS Safety Report 7768463-1 (Version None)
Quarter: 2011Q3

REPORT INFORMATION
  Report Type: 
  Country: None (occurrence: None)
  Receive Date: 20110922
  Receipt Date: 20110301
  Transmission Date: 20111222
  Serious: No
  Sender: FDA-Public Use
  Company Number: US-ASTRAZENECA-2011SE11186

PATIENT
  Age: 17 Year
  Sex: Male

DRUGS (2)
  1. DEPAKOTE ER [Concomitant]
  2. SEROQUEL [Suspect]
     Indication: BIPOLAR DISORDER
     Route: 048

REACTIONS (5)
  - FEELING ABNORMAL [None]
  - UNRESPONSIVE TO STIMULI [None]
  - INSOMNIA [None]
  - IRRITABILITY [None]
  - DRUG DOSE OMISSION [None]
